FAERS Safety Report 18736147 (Version 1)
Quarter: 2021Q1

REPORT INFORMATION
  Report Type: Spontaneous
  Country: GB (occurrence: GB)
  Receive Date: 20210113
  Receipt Date: 20210113
  Transmission Date: 20210419
  Serious: Yes (Hospitalization)
  Sender: FDA-Public Use
  Company Number: GB-SA-2021SA001872

PATIENT
  Age: 8 Year
  Sex: Female

DRUGS (15)
  1. CLINDAMYCIN. [Concomitant]
     Active Substance: CLINDAMYCIN
     Indication: PSEUDOMONAS INFECTION
  2. PIPERACILLIN AND TAZOBACTAM [Concomitant]
     Active Substance: PIPERACILLIN SODIUM\TAZOBACTAM SODIUM
     Indication: PSEUDOMONAS INFECTION
  3. CLONIDINE. [Suspect]
     Active Substance: CLONIDINE
     Indication: ANALGESIC THERAPY
  4. ISONIAZID. [Interacting]
     Active Substance: ISONIAZID
     Indication: MYCOBACTERIUM TUBERCULOSIS COMPLEX TEST POSITIVE
  5. AMIKACIN. [Concomitant]
     Active Substance: AMIKACIN
     Indication: PSEUDOMONAS INFECTION
     Dosage: UNK
  6. PROPOFOL. [Concomitant]
     Active Substance: PROPOFOL
     Indication: DELIRIUM
  7. FENTANYL. [Interacting]
     Active Substance: FENTANYL
     Indication: SEDATION
  8. RIFAMPICIN [Suspect]
     Active Substance: RIFAMPIN
     Indication: MYCOBACTERIUM TUBERCULOSIS COMPLEX TEST POSITIVE
  9. CLONIDINE. [Suspect]
     Active Substance: CLONIDINE
     Indication: SEDATION
  10. MIDAZOLAM. [Interacting]
     Active Substance: MIDAZOLAM
     Indication: SEDATION
     Dosage: 24?HOUR DOSE: 7.39MG/KG
  11. MIDAZOLAM. [Interacting]
     Active Substance: MIDAZOLAM
     Indication: ANALGESIC THERAPY
     Dosage: 24?HOUR DOSE: 70.7 MG/KG
  12. PYRAZINAMIDE. [Interacting]
     Active Substance: PYRAZINAMIDE
     Indication: MYCOBACTERIUM TUBERCULOSIS COMPLEX TEST POSITIVE
  13. FENTANYL. [Interacting]
     Active Substance: FENTANYL
     Indication: ANALGESIC THERAPY
  14. RISPERIDONE. [Concomitant]
     Active Substance: RISPERIDONE
     Indication: DELIRIUM
     Dosage: UNK
  15. GABAPENTIN. [Concomitant]
     Active Substance: GABAPENTIN

REACTIONS (2)
  - Drug withdrawal syndrome [Unknown]
  - Drug interaction [Unknown]
